FAERS Safety Report 11487232 (Version 2)
Quarter: 2015Q4

REPORT INFORMATION
  Report Type: Spontaneous
  Country: US (occurrence: US)
  Receive Date: 20150910
  Receipt Date: 20151023
  Transmission Date: 20160304
  Serious: Yes (Other)
  Sender: FDA-Public Use
  Company Number: US-PFIZER INC-2015299278

PATIENT
  Age: 73 Year
  Sex: Female

DRUGS (2)
  1. CELEBREX [Suspect]
     Active Substance: CELECOXIB
     Indication: PAIN
     Dosage: 1 DF, DAILY
     Dates: start: 2015
  2. CELEBREX [Suspect]
     Active Substance: CELECOXIB
     Dosage: 200 MG, 2X/DAY

REACTIONS (2)
  - Neoplasm malignant [Unknown]
  - Pain [Unknown]

NARRATIVE: CASE EVENT DATE: 201507
